FAERS Safety Report 15578354 (Version 2)
Quarter: 2019Q1

REPORT INFORMATION
  Report Type: Other
  Country: IT (occurrence: IT)
  Receive Date: 20181102
  Receipt Date: 20190219
  Transmission Date: 20190417
  Serious: Yes (Hospitalization)
  Sender: FDA-Public Use
  Company Number: IT-ACCORD-090787

PATIENT
  Age: 85 Year
  Sex: Male

DRUGS (9)
  1. FOLIFEM [Concomitant]
  2. HUMALOG [Concomitant]
     Active Substance: INSULIN LISPRO
  3. XARELTO [Concomitant]
     Active Substance: RIVAROXABAN
  4. PRADIF [Concomitant]
     Active Substance: TAMSULOSIN HYDROCHLORIDE
  5. TAREG [Concomitant]
     Active Substance: VALSARTAN
  6. ZYLORIC [Concomitant]
     Active Substance: ALLOPURINOL
  7. FUROSEMIDE. [Suspect]
     Active Substance: FUROSEMIDE
     Indication: HYPERTENSION
     Route: 048
     Dates: start: 20170101, end: 20170716
  8. LANSOX [Concomitant]
     Active Substance: LANSOPRAZOLE
  9. FOLIFILL [Concomitant]

REACTIONS (2)
  - Confusional state [Unknown]
  - Hyponatraemia [Unknown]

NARRATIVE: CASE EVENT DATE: 20170716
